FAERS Safety Report 8346603 (Version 5)
Quarter: 2014Q2

REPORT INFORMATION
  Report Type: Report from Study
  Country: US (occurrence: US)
  Receive Date: 20120120
  Receipt Date: 20140414
  Transmission Date: 20141212
  Serious: Yes (Hospitalization)
  Sender: FDA-Public Use
  Company Number: US-ACTELION-A-NJ2008-19219

PATIENT
  Age: 58 Year
  Sex: Female

DRUGS (5)
  1. TRACLEER [Suspect]
     Indication: PULMONARY ARTERIAL HYPERTENSION
     Dosage: UNK
     Route: 048
     Dates: start: 200212
  2. REVATIO [Concomitant]
  3. COUMADIN [Concomitant]
  4. PANCRELIPASE [Concomitant]
  5. OXYGEN [Concomitant]

REACTIONS (17)
  - Respiratory arrest [Unknown]
  - Endotracheal intubation [Unknown]
  - Disorientation [Unknown]
  - Vaginal haemorrhage [Unknown]
  - Rectal haemorrhage [Unknown]
  - Blood pressure abnormal [Unknown]
  - Hypertension [Unknown]
  - Diabetes mellitus inadequate control [Unknown]
  - Hyperglycaemic hyperosmolar nonketotic syndrome [Unknown]
  - Renal failure [Unknown]
  - Disturbance in attention [Unknown]
  - Dehydration [Unknown]
  - Blood glucose increased [Unknown]
  - Fatigue [Unknown]
  - Syncope [Unknown]
  - Drug dose omission [Unknown]
  - Headache [Unknown]
